FAERS Safety Report 8496604-X (Version None)
Quarter: 2012Q3

REPORT INFORMATION
  Report Type: 
  Country: None (occurrence: None)
  Receive Date: 20120709
  Receipt Date: 20120627
  Transmission Date: 20120928
  Serious: Yes (Hospitalization)
  Sender: FDA-Public Use
  Company Number: IT-PFIZER INC-2012118883

PATIENT
  Age: 62 Year
  Sex: Female

DRUGS (3)
  1. PAZOPANIB [Suspect]
     Dosage: 800 MG, UNK
     Route: 048
     Dates: start: 20101228
  2. SUNITINIB MALATE [Suspect]
     Indication: RENAL CELL CARCINOMA
     Dosage: 50 MG, 1X/DAY (TREATMENT PERIOD 1)
     Route: 048
     Dates: start: 20100703, end: 20101009
  3. PAZOPANIB [Suspect]
     Indication: RENAL CELL CARCINOMA
     Dosage: 800 MG
     Route: 048
     Dates: start: 20101022, end: 20101227

REACTIONS (1)
  - ANAEMIA [None]
